FAERS Safety Report 5684092-8 (Version None)
Quarter: 2008Q1

REPORT INFORMATION
  Report Type: 
  Country: None (occurrence: None)
  Receive Date: 20080328
  Receipt Date: 20070215
  Transmission Date: 20080703
  Serious: No
  Sender: FDA-Public Use
  Company Number: US-AMGEN-KDL211263

PATIENT
  Sex: Female

DRUGS (6)
  1. NEULASTA [Suspect]
     Indication: CHEMOTHERAPY
     Dates: start: 20070201
  2. DECADRON [Concomitant]
  3. BENADRYL [Concomitant]
  4. ADRIAMYCIN PFS [Concomitant]
  5. CYCLOPHOSPHAMIDE [Concomitant]
  6. EMEND [Concomitant]

REACTIONS (3)
  - HYPERSENSITIVITY [None]
  - RASH PRURITIC [None]
  - SWOLLEN TONGUE [None]
